FAERS Safety Report 6170203-7 (Version None)
Quarter: 2009Q2

REPORT INFORMATION
  Report Type: 
  Country: None (occurrence: None)
  Receive Date: 20090428
  Receipt Date: 20090421
  Transmission Date: 20091009
  Serious: Yes (Other)
  Sender: FDA-Public Use
  Company Number: PHHY2009MY05877

PATIENT
  Age: 46 Year
  Sex: Male

DRUGS (3)
  1. TEGRETOL [Suspect]
     Indication: EPILEPSY
     Dosage: UNK
     Route: 048
     Dates: start: 20071213
  2. VALPROATE SODIUM [Suspect]
     Indication: PSYCHOTIC DISORDER
     Dosage: 600 MG
     Route: 048
  3. SULPIRIDE [Concomitant]

REACTIONS (5)
  - ANGIOEDEMA [None]
  - PRURITUS [None]
  - RASH ERYTHEMATOUS [None]
  - RASH MACULO-PAPULAR [None]
  - SKIN EXFOLIATION [None]
